FAERS Safety Report 8261358-9 (Version None)
Quarter: 2012Q2

REPORT INFORMATION
  Report Type: 
  Country: None (occurrence: None)
  Receive Date: 20120405
  Receipt Date: 20120330
  Transmission Date: 20120825
  Serious: Yes (Other)
  Sender: FDA-Public Use
  Company Number: US-PFIZER INC-2012038590

PATIENT
  Sex: Male
  Weight: 83 kg

DRUGS (2)
  1. SANDOSTATIN [Suspect]
     Indication: HEPATIC NEOPLASM
     Dosage: UNK
  2. SUTENT [Suspect]
     Indication: HEPATIC NEOPLASM
     Dosage: 12.5 MG, 3X/DAY
     Route: 048
     Dates: start: 20120327

REACTIONS (1)
  - HAEMATOSPERMIA [None]
